APPROVED DRUG PRODUCT: PERGOLIDE MESYLATE
Active Ingredient: PERGOLIDE MESYLATE
Strength: EQ 1MG BASE
Dosage Form/Route: TABLET;ORAL
Application: A076094 | Product #003
Applicant: IVAX PHARMACEUTICALS INC SUB TEVA PHARMACEUTICALS USA
Approved: Sep 4, 2003 | RLD: No | RS: No | Type: DISCN